FAERS Safety Report 7413162-9 (Version None)
Quarter: 2011Q2

REPORT INFORMATION
  Report Type: 
  Country: None (occurrence: None)
  Receive Date: 20110413
  Receipt Date: 20110407
  Transmission Date: 20111010
  Serious: Yes (Other)
  Sender: FDA-Public Use
  Company Number: FR-BRISTOL-MYERS SQUIBB COMPANY-15585789

PATIENT
  Sex: Male

DRUGS (4)
  1. CYMBALTA [Suspect]
  2. NORSET [Concomitant]
     Indication: DEPRESSION
     Dosage: 1DF=2 TABLETS IN THE EVENING
     Route: 048
  3. IKARAN [Concomitant]
     Indication: MYALGIA
     Dosage: 1DF= 2 TABLETS
     Route: 048
  4. ABILIFY [Suspect]
     Indication: DEPRESSION
     Dosage: 10MG
     Route: 048
     Dates: end: 20110228

REACTIONS (1)
  - HEMIANOPIA [None]
